FAERS Safety Report 13929676 (Version 6)
Quarter: 2018Q1

REPORT INFORMATION
  Report Type: Report from Study
  Country: BR (occurrence: BR)
  Receive Date: 20170901
  Receipt Date: 20180213
  Transmission Date: 20180508
  Serious: Yes (Life-Threatening, Hospitalization)
  Sender: FDA-Public Use
  Company Number: BR-ROCHE-1978460

PATIENT
  Age: 63 Year
  Sex: Female
  Weight: 68 kg

DRUGS (113)
  1. ALBUMIN [Concomitant]
     Active Substance: ALBUMIN HUMAN
     Indication: SEPSIS
     Route: 065
     Dates: start: 20170911, end: 20170911
  2. BROMOPRIDE [Concomitant]
     Active Substance: BROMOPRIDE
     Route: 065
     Dates: start: 20170909, end: 20170909
  3. ENOXAPARIN [Concomitant]
     Active Substance: ENOXAPARIN
     Route: 065
     Dates: start: 20170814, end: 20170831
  4. FUROSEMIDE. [Concomitant]
     Active Substance: FUROSEMIDE
     Route: 065
     Dates: start: 20170909, end: 20170909
  5. HEPARIN [Concomitant]
     Active Substance: HEPARIN SODIUM
     Route: 065
     Dates: start: 20170907, end: 20170912
  6. HYDROCORTISONE. [Concomitant]
     Active Substance: HYDROCORTISONE
     Route: 065
     Dates: start: 20170909, end: 20170909
  7. HYDROCORTISONE. [Concomitant]
     Active Substance: HYDROCORTISONE
     Route: 065
     Dates: start: 20170910, end: 20170912
  8. ONDANSETRON [Concomitant]
     Active Substance: ONDANSETRON
     Route: 065
     Dates: start: 20170812, end: 20170812
  9. ONDANSETRON [Concomitant]
     Active Substance: ONDANSETRON
     Route: 065
     Dates: start: 20170924, end: 20170924
  10. ONDANSETRON [Concomitant]
     Active Substance: ONDANSETRON
     Route: 065
     Dates: start: 20170827, end: 20170827
  11. POLYMYXIN E [Concomitant]
     Route: 065
     Dates: start: 20170922, end: 20170922
  12. RIVOTRIL [Concomitant]
     Active Substance: CLONAZEPAM
     Route: 065
     Dates: start: 20170822, end: 20170822
  13. 5-FLUOROURACIL [Suspect]
     Active Substance: FLUOROURACIL
     Indication: COLORECTAL CANCER METASTATIC
     Dosage: DATE OF MOST RECENT DOSE OF FOLFOX 4480 MG PRIOR TO THE SAE: 02/AUG/2017 AT 14:15?5-FU 640MG AND 384
     Route: 042
     Dates: start: 20170719
  14. OXALIPLATIN. [Suspect]
     Active Substance: OXALIPLATIN
     Indication: COLORECTAL CANCER METASTATIC
     Dosage: DATE OF MOST RECENT DOSE OF FOLFOX 4480 MG PRIOR TO THE SAE: 02/AUG/2017 AT 14:15?OXAPLATIN 136 MG I
     Route: 042
     Dates: start: 20170719
  15. ATROPINE. [Concomitant]
     Active Substance: ATROPINE
     Route: 065
     Dates: start: 20170812, end: 20170812
  16. AMIKACIN [Concomitant]
     Active Substance: AMIKACIN
     Indication: SEPSIS
     Route: 065
     Dates: start: 20170925, end: 20170925
  17. DIMENHYDRINATE. [Concomitant]
     Active Substance: DIMENHYDRINATE
     Route: 065
     Dates: start: 20170929, end: 20170929
  18. FUROSEMIDE. [Concomitant]
     Active Substance: FUROSEMIDE
     Route: 065
     Dates: start: 20170816, end: 20170816
  19. HEPARIN [Concomitant]
     Active Substance: HEPARIN SODIUM
     Route: 065
     Dates: start: 20170905, end: 20170906
  20. IMIPENEM [Concomitant]
     Active Substance: IMIPENEM
     Route: 065
     Dates: start: 20170927, end: 20170928
  21. MAGNESIUM SULFATE. [Concomitant]
     Active Substance: MAGNESIUM SULFATE
     Dosage: 3 AMPOULE
     Route: 065
     Dates: start: 20170831, end: 20170831
  22. MAGNESIUM SULFATE. [Concomitant]
     Active Substance: MAGNESIUM SULFATE
     Dosage: 2 AMPOULE
     Route: 065
     Dates: start: 20170906, end: 20170906
  23. MAGNESIUM SULFATE. [Concomitant]
     Active Substance: MAGNESIUM SULFATE
     Route: 065
     Dates: start: 20170910, end: 20170910
  24. MAGNESIUM SULFATE. [Concomitant]
     Active Substance: MAGNESIUM SULFATE
     Dosage: 2 AMPOULE
     Route: 065
     Dates: start: 20170929, end: 20170929
  25. MORPHINE [Concomitant]
     Active Substance: MORPHINE
     Route: 065
     Dates: start: 20170812, end: 20170812
  26. ONDANSETRON [Concomitant]
     Active Substance: ONDANSETRON
     Route: 065
     Dates: start: 20170820, end: 20170821
  27. ONDANSETRON [Concomitant]
     Active Substance: ONDANSETRON
     Route: 065
     Dates: start: 20170922, end: 20170922
  28. ONDANSETRON [Concomitant]
     Active Substance: ONDANSETRON
     Route: 065
     Dates: start: 20170923, end: 20170923
  29. ONDANSETRON [Concomitant]
     Active Substance: ONDANSETRON
     Route: 065
     Dates: start: 20170830, end: 20170831
  30. POLYMYXIN E [Concomitant]
     Route: 065
     Dates: start: 20170920, end: 20170921
  31. RIVOTRIL [Concomitant]
     Active Substance: CLONAZEPAM
     Route: 065
     Dates: start: 20170816, end: 20170818
  32. VANCOMYCIN [Concomitant]
     Active Substance: VANCOMYCIN
     Route: 065
     Dates: start: 20170910, end: 20170910
  33. EMEND [Concomitant]
     Active Substance: APREPITANT
     Route: 065
     Dates: start: 20170802, end: 20170802
  34. EMEND [Concomitant]
     Active Substance: APREPITANT
     Route: 065
     Dates: start: 20170719
  35. ALBUMIN [Concomitant]
     Active Substance: ALBUMIN HUMAN
     Route: 065
     Dates: start: 20170918, end: 20170919
  36. BROMOPRIDE [Concomitant]
     Active Substance: BROMOPRIDE
     Route: 065
     Dates: start: 20170919, end: 20170919
  37. BROMOPRIDE [Concomitant]
     Active Substance: BROMOPRIDE
     Route: 065
     Dates: start: 20170820, end: 20170820
  38. BROMOPRIDE [Concomitant]
     Active Substance: BROMOPRIDE
     Route: 065
     Dates: start: 20170921, end: 20170929
  39. BROMOPRIDE [Concomitant]
     Active Substance: BROMOPRIDE
     Route: 065
     Dates: start: 20170824, end: 20170824
  40. BROMOPRIDE [Concomitant]
     Active Substance: BROMOPRIDE
     Route: 065
     Dates: start: 20170825, end: 20170826
  41. BROMOPRIDE [Concomitant]
     Active Substance: BROMOPRIDE
     Route: 065
     Dates: start: 20170827, end: 20170828
  42. FLUCONAZOLE. [Concomitant]
     Active Substance: FLUCONAZOLE
     Route: 065
     Dates: start: 20170906, end: 20170912
  43. MERONEM [Concomitant]
     Active Substance: MEROPENEM
     Route: 065
     Dates: start: 20170815, end: 20170815
  44. MERONEM [Concomitant]
     Active Substance: MEROPENEM
     Route: 065
     Dates: start: 20170816, end: 20170828
  45. MERONEM [Concomitant]
     Active Substance: MEROPENEM
     Route: 065
     Dates: start: 20170905, end: 20170905
  46. ONDANSETRON [Concomitant]
     Active Substance: ONDANSETRON
     Route: 065
     Dates: start: 20170815, end: 20170819
  47. ONDANSETRON [Concomitant]
     Active Substance: ONDANSETRON
     Route: 065
     Dates: start: 20170925, end: 20170928
  48. VANCOMYCIN [Concomitant]
     Active Substance: VANCOMYCIN
     Route: 065
     Dates: start: 20170827, end: 20170827
  49. VANCOMYCIN [Concomitant]
     Active Substance: VANCOMYCIN
     Route: 065
     Dates: start: 20170912, end: 20170912
  50. BEVACIZUMAB. [Suspect]
     Active Substance: BEVACIZUMAB
     Indication: COLORECTAL CANCER METASTATIC
     Dosage: DATE OF MOST RECENT DOSE OF BEVACIZUMAB 340 MG PRIOR TO THE SAE: 02/AUG/2017 AT 11:58
     Route: 042
     Dates: start: 20170719
  51. FOLINIC ACID [Suspect]
     Active Substance: LEUCOVORIN
     Indication: COLORECTAL CANCER METASTATIC
     Dosage: DATE OF MOST RECENT DOSE OF FOLFOX 4480 MG PRIOR TO THE SAE: 02/AUG/2017 AT 14:15?LEUCOVORIN 640MG I
     Route: 042
     Dates: start: 20170719
  52. NEOSTIGMINE [Concomitant]
     Active Substance: NEOSTIGMINE
     Route: 065
     Dates: start: 20170812, end: 20170812
  53. ALBUMIN [Concomitant]
     Active Substance: ALBUMIN HUMAN
     Route: 065
     Dates: start: 20170916, end: 20170916
  54. AMIKACIN [Concomitant]
     Active Substance: AMIKACIN
     Route: 065
     Dates: start: 20170926, end: 20170928
  55. BROMOPRIDE [Concomitant]
     Active Substance: BROMOPRIDE
     Indication: PROPHYLAXIS OF NAUSEA AND VOMITING
     Route: 065
     Dates: start: 20170907, end: 20170908
  56. BROMOPRIDE [Concomitant]
     Active Substance: BROMOPRIDE
     Route: 065
     Dates: start: 20170813, end: 20170813
  57. BROMOPRIDE [Concomitant]
     Active Substance: BROMOPRIDE
     Route: 065
     Dates: start: 20170821, end: 20170822
  58. BROMOPRIDE [Concomitant]
     Active Substance: BROMOPRIDE
     Route: 065
     Dates: start: 20170823, end: 20170823
  59. FUROSEMIDE. [Concomitant]
     Active Substance: FUROSEMIDE
     Route: 065
     Dates: start: 20170817, end: 20170817
  60. HEPARIN [Concomitant]
     Active Substance: HEPARIN SODIUM
     Route: 065
     Dates: start: 20170929, end: 20170929
  61. IMIPENEM [Concomitant]
     Active Substance: IMIPENEM
     Route: 065
     Dates: start: 20170925, end: 20170925
  62. MAGNESIUM SULFATE. [Concomitant]
     Active Substance: MAGNESIUM SULFATE
     Dosage: 2 AMPOULE
     Route: 065
     Dates: start: 20170912, end: 20170912
  63. MERONEM [Concomitant]
     Active Substance: MEROPENEM
     Route: 065
     Dates: start: 20170906, end: 20170906
  64. ONDANSETRON [Concomitant]
     Active Substance: ONDANSETRON
     Route: 065
     Dates: start: 20170829, end: 20170829
  65. VANCOMYCIN [Concomitant]
     Active Substance: VANCOMYCIN
     Route: 065
     Dates: start: 20170905, end: 20170906
  66. MORPHINE [Concomitant]
     Active Substance: MORPHINE
     Route: 065
     Dates: start: 20170812, end: 20170812
  67. BROMOPRIDE [Concomitant]
     Active Substance: BROMOPRIDE
     Route: 065
     Dates: start: 20170910, end: 20170910
  68. BROMOPRIDE [Concomitant]
     Active Substance: BROMOPRIDE
     Route: 065
     Dates: start: 20170812, end: 20170812
  69. BROMOPRIDE [Concomitant]
     Active Substance: BROMOPRIDE
     Route: 065
     Dates: start: 20170930, end: 20170930
  70. BUSCOPAN [Concomitant]
     Active Substance: BUTYLSCOPOLAMINE BROMIDE
     Dosage: 1 AMPULE
     Route: 065
     Dates: start: 20170930, end: 20170930
  71. BUSCOPLEX COMPOSTO [Concomitant]
     Route: 065
     Dates: start: 201706
  72. DIMENHYDRINATE. [Concomitant]
     Active Substance: DIMENHYDRINATE
     Route: 065
     Dates: start: 20170923, end: 20170928
  73. FUROSEMIDE. [Concomitant]
     Active Substance: FUROSEMIDE
     Route: 065
     Dates: start: 20170907, end: 20170907
  74. FUROSEMIDE. [Concomitant]
     Active Substance: FUROSEMIDE
     Route: 065
     Dates: start: 20170814, end: 20170814
  75. HEPARIN [Concomitant]
     Active Substance: HEPARIN SODIUM
     Route: 065
     Dates: start: 20170913, end: 20170913
  76. IMIPENEM [Concomitant]
     Active Substance: IMIPENEM
     Route: 065
     Dates: start: 20170922, end: 20170923
  77. IMOSEC [Concomitant]
     Active Substance: LOPERAMIDE
     Route: 065
     Dates: start: 20170823, end: 20170831
  78. MAGNESIUM SULFATE. [Concomitant]
     Active Substance: MAGNESIUM SULFATE
     Route: 065
     Dates: start: 20170911, end: 20170911
  79. MERONEM [Concomitant]
     Active Substance: MEROPENEM
     Route: 065
     Dates: start: 20170910, end: 20170911
  80. VANCOMYCIN [Concomitant]
     Active Substance: VANCOMYCIN
     Route: 065
     Dates: start: 20170822, end: 20170825
  81. VANCOMYCIN [Concomitant]
     Active Substance: VANCOMYCIN
     Route: 065
     Dates: start: 20170911, end: 20170911
  82. ALBUMIN [Concomitant]
     Active Substance: ALBUMIN HUMAN
     Route: 065
     Dates: start: 20170914, end: 20170914
  83. BROMOPRIDE [Concomitant]
     Active Substance: BROMOPRIDE
     Route: 065
     Dates: start: 20170914, end: 20170914
  84. BROMOPRIDE [Concomitant]
     Active Substance: BROMOPRIDE
     Route: 065
     Dates: start: 20170816, end: 20170819
  85. FUROSEMIDE. [Concomitant]
     Active Substance: FUROSEMIDE
     Route: 065
     Dates: start: 20170813, end: 20170813
  86. GLUCOSE [Concomitant]
     Active Substance: DEXTROSE
     Dosage: 16 AMPLOUE
     Route: 065
     Dates: start: 20170925, end: 20170927
  87. HEPARIN [Concomitant]
     Active Substance: HEPARIN SODIUM
     Route: 065
     Dates: start: 20170922, end: 20170922
  88. HEPARIN [Concomitant]
     Active Substance: HEPARIN SODIUM
     Route: 065
     Dates: start: 20170923, end: 20170928
  89. MAGNESIUM SULFATE. [Concomitant]
     Active Substance: MAGNESIUM SULFATE
     Route: 065
     Dates: start: 20170819, end: 20170820
  90. MAGNESIUM SULFATE. [Concomitant]
     Active Substance: MAGNESIUM SULFATE
     Route: 065
     Dates: start: 20170821, end: 20170821
  91. MERONEM [Concomitant]
     Active Substance: MEROPENEM
     Route: 065
     Dates: start: 20170912, end: 20170912
  92. ONDANSETRON [Concomitant]
     Active Substance: ONDANSETRON
     Route: 065
     Dates: start: 20170822, end: 20170823
  93. ONDANSETRON [Concomitant]
     Active Substance: ONDANSETRON
     Route: 065
     Dates: start: 20170720, end: 20170721
  94. OMEPRAZOLE. [Concomitant]
     Active Substance: OMEPRAZOLE
     Route: 065
     Dates: start: 20170814, end: 20170831
  95. PAMIDRONATE DISODIUM. [Concomitant]
     Active Substance: PAMIDRONATE DISODIUM
     Route: 065
     Dates: start: 20170905, end: 20170905
  96. POLYMYXIN E [Concomitant]
     Route: 065
     Dates: start: 20170918, end: 20170919
  97. VANCOMYCIN [Concomitant]
     Active Substance: VANCOMYCIN
     Route: 065
     Dates: start: 20170826, end: 20170826
  98. DIMENHYDRINATE. [Concomitant]
     Active Substance: DIMENHYDRINATE
     Route: 065
     Dates: start: 20170930, end: 20170930
  99. ENOXAPARIN [Concomitant]
     Active Substance: ENOXAPARIN
     Route: 065
     Dates: start: 20170914, end: 20170922
  100. HYDROCORTISONE. [Concomitant]
     Active Substance: HYDROCORTISONE
     Route: 065
     Dates: start: 20170905, end: 20170905
  101. IMIPENEM [Concomitant]
     Active Substance: IMIPENEM
     Route: 065
     Dates: start: 20170926, end: 20170926
  102. MERONEM [Concomitant]
     Active Substance: MEROPENEM
     Route: 065
     Dates: start: 20170829, end: 20170829
  103. ONDANSETRON [Concomitant]
     Active Substance: ONDANSETRON
     Route: 065
     Dates: start: 20170719
  104. OMEPRAZOLE. [Concomitant]
     Active Substance: OMEPRAZOLE
     Route: 065
     Dates: start: 20170813, end: 20170813
  105. BROMOPRIDE [Concomitant]
     Active Substance: BROMOPRIDE
     Route: 065
     Dates: start: 20170815, end: 20170815
  106. BUSCOPAN [Concomitant]
     Active Substance: BUTYLSCOPOLAMINE BROMIDE
     Dosage: 2 AMPOULE
     Route: 065
     Dates: start: 20170929, end: 20170929
  107. HYDROCORTISONE. [Concomitant]
     Active Substance: HYDROCORTISONE
     Route: 065
     Dates: start: 20170906, end: 20170908
  108. IMIPENEM [Concomitant]
     Active Substance: IMIPENEM
     Route: 065
     Dates: start: 20170924, end: 20170924
  109. MERONEM [Concomitant]
     Active Substance: MEROPENEM
     Route: 065
     Dates: start: 20170907, end: 20170909
  110. MORPHINE [Concomitant]
     Active Substance: MORPHINE
     Route: 065
     Dates: start: 20170929, end: 20170930
  111. ONDANSETRON [Concomitant]
     Active Substance: ONDANSETRON
     Route: 065
     Dates: start: 20170828, end: 20170828
  112. RIVOTRIL [Concomitant]
     Active Substance: CLONAZEPAM
     Route: 065
     Dates: start: 20170824, end: 20170830
  113. VANCOMYCIN [Concomitant]
     Active Substance: VANCOMYCIN
     Route: 065
     Dates: start: 20170828, end: 20170828

REACTIONS (1)
  - Large intestinal obstruction [Recovered/Resolved]

NARRATIVE: CASE EVENT DATE: 20170812
